FAERS Safety Report 5390235-6 (Version None)
Quarter: 2007Q3

REPORT INFORMATION
  Report Type: 
  Country: None (occurrence: None)
  Receive Date: 20070718
  Receipt Date: 20070706
  Transmission Date: 20080115
  Serious: Yes (Hospitalization)
  Sender: FDA-Public Use
  Company Number: GB-ROCHE-506930

PATIENT
  Age: 62 Year
  Sex: Female
  Weight: 113.8 kg

DRUGS (4)
  1. XENICAL [Suspect]
     Indication: OBESITY
     Route: 048
     Dates: start: 20061012
  2. UNSPECIFIED DRUG [Concomitant]
     Indication: BLOOD PRESSURE
  3. UNSPECIFIED DRUG [Concomitant]
  4. UNSPECIFIED DRUG [Concomitant]

REACTIONS (5)
  - ANGINA PECTORIS [None]
  - BLOOD PRESSURE DECREASED [None]
  - DIZZINESS [None]
  - DYSPNOEA [None]
  - HEART RATE INCREASED [None]
